FAERS Safety Report 6759546-3 (Version None)
Quarter: 2010Q2

REPORT INFORMATION
  Report Type: 
  Country: None (occurrence: None)
  Receive Date: 20100604
  Receipt Date: 20100524
  Transmission Date: 20101027
  Serious: Yes (Death, Life-Threatening, Hospitalization, Other)
  Sender: FDA-Public Use
  Company Number: 2009AC000401

PATIENT
  Age: 73 Year
  Sex: Male

DRUGS (10)
  1. DIGOXIN [Suspect]
     Dosage: 125 MCG; PO
     Route: 048
     Dates: start: 20030101
  2. DIGOXIN [Suspect]
     Indication: ATRIAL FIBRILLATION
     Dosage: .125 MG;QD;PO
     Dates: start: 20050801, end: 20080404
  3. DIGOXIN [Suspect]
     Dosage: 0.25 MG;BID;IV
     Route: 042
     Dates: start: 20080620, end: 20080620
  4. DIGOXIN [Suspect]
     Dosage: 0.0625 MG;QD;PO
     Route: 048
     Dates: start: 20090621, end: 20090629
  5. FUROSEMIDE [Concomitant]
  6. TOPROL-XL [Concomitant]
  7. NEXIUM [Concomitant]
  8. SUCRALFATE [Concomitant]
  9. FLOVENT [Concomitant]
  10. SPIRIVA [Concomitant]

REACTIONS (26)
  - ANAEMIA [None]
  - AORTIC STENOSIS [None]
  - ATRIAL FIBRILLATION [None]
  - BRADYCARDIA [None]
  - CARDIAC FAILURE CONGESTIVE [None]
  - CELLULITIS [None]
  - CHRONIC OBSTRUCTIVE PULMONARY DISEASE [None]
  - CYANOSIS [None]
  - DECREASED APPETITE [None]
  - DRUG LEVEL BELOW THERAPEUTIC [None]
  - ECONOMIC PROBLEM [None]
  - EMOTIONAL DISORDER [None]
  - GASTRIC ULCER [None]
  - GASTROOESOPHAGEAL REFLUX DISEASE [None]
  - HAEMOGLOBIN DECREASED [None]
  - HYPOTENSION [None]
  - INJURY [None]
  - LOSS OF CONSCIOUSNESS [None]
  - PAIN [None]
  - PULMONARY HYPERTENSION [None]
  - RENAL FAILURE ACUTE [None]
  - SLEEP APNOEA SYNDROME [None]
  - SOCIAL AVOIDANT BEHAVIOUR [None]
  - SOMNOLENCE [None]
  - UNEVALUABLE EVENT [None]
  - UPPER GASTROINTESTINAL HAEMORRHAGE [None]
